FAERS Safety Report 9179509 (Version 1)
Quarter: 2012Q4

REPORT INFORMATION
  Report Type: Report from Study
  Country: US (occurrence: US)
  Receive Date: 20121029
  Receipt Date: 20121029
  Transmission Date: 20130627
  Serious: Yes (Disabling, Other)
  Sender: FDA-Public Use
  Company Number: US-ROCHE-1146579

PATIENT
  Sex: Female
  Weight: 103.06 kg

DRUGS (19)
  1. SOMATROPIN [Suspect]
     Indication: PRODUCT USED FOR UNKNOWN INDICATION
     Route: 058
     Dates: start: 201205, end: 201209
  2. GLUCOPHAGE XR [Concomitant]
     Route: 065
  3. PHENERGAN [Concomitant]
     Route: 065
  4. LANTUS SOLOSTAR [Concomitant]
     Dosage: 100 unit/Ml
     Route: 065
  5. LIPITOR [Concomitant]
     Route: 065
  6. VASOTEC [Concomitant]
     Route: 065
  7. TOPAMAX [Concomitant]
     Route: 065
  8. COLACE [Concomitant]
     Route: 065
  9. ZANAFLEX [Concomitant]
     Route: 065
  10. LORATAB [Concomitant]
     Route: 065
  11. PROZAC [Concomitant]
     Route: 065
  12. SINGULAIR [Concomitant]
     Route: 065
  13. NASONEX [Concomitant]
     Route: 065
  14. PEPCID [Concomitant]
     Route: 065
  15. DESYREL [Concomitant]
     Route: 065
  16. AMBIEN CR [Concomitant]
     Route: 065
  17. XANAX TAB [Concomitant]
     Route: 065
  18. LUMIGAN [Concomitant]
     Dosage: 1 drop in each eye
     Route: 065
  19. HUMALOG [Concomitant]
     Dosage: 100 unit/mL pen injector
     Route: 065

REACTIONS (7)
  - Adverse reaction [Unknown]
  - Arthralgia [Not Recovered/Not Resolved]
  - Mass [Recovered/Resolved]
  - Nausea [Not Recovered/Not Resolved]
  - Fatigue [Not Recovered/Not Resolved]
  - Hypoaesthesia [Not Recovered/Not Resolved]
  - Carpal tunnel syndrome [Not Recovered/Not Resolved]
